FAERS Safety Report 17581757 (Version 1)
Quarter: 2020Q3

REPORT INFORMATION
  Report Type: Spontaneous
  Country: ES (occurrence: ES)
  Receive Date: 20200325
  Receipt Date: 20200325
  Transmission Date: 20201104
  Serious: Yes (Hospitalization, Other)
  Sender: FDA-Public Use
  Company Number: ES-MYLANLABS-2020M1030530

PATIENT
  Age: 50 Year
  Sex: Male
  Weight: 76.9 kg

DRUGS (29)
  1. GEMCITABINE. [Suspect]
     Active Substance: GEMCITABINE
     Dosage: 800 MILLIGRAM/SQ. METER
     Route: 041
     Dates: start: 20190416, end: 20190416
  2. ABRAXANE [Suspect]
     Active Substance: PACLITAXEL
     Indication: PRODUCT USED FOR UNKNOWN INDICATION
     Dosage: 100 MILLIGRAM/SQ. METER
     Dates: start: 20190130, end: 20190130
  3. OLECLUMAB. [Suspect]
     Active Substance: OLECLUMAB
     Indication: PANCREATIC CARCINOMA METASTATIC
     Dosage: 30000 MILLIGRAM
     Route: 041
     Dates: start: 20190123, end: 20190123
  4. URBASON DEPOT [Concomitant]
     Indication: ASTHENIA
     Dosage: 23 MILLIGRAM
     Route: 002
     Dates: start: 20190416
  5. KREON [Concomitant]
     Active Substance: PANCRELIPASE
     Indication: PROPHYLAXIS
     Dosage: 2500 INTERNATIONAL UNIT
     Route: 048
  6. ABRAXANE [Suspect]
     Active Substance: PACLITAXEL
     Dosage: 100 MILLIGRAM/SQ. METER
     Dates: start: 20190213, end: 20190213
  7. ABRAXANE [Suspect]
     Active Substance: PACLITAXEL
     Dosage: 100 MILLIGRAM/SQ. METER
     Dates: start: 20190404, end: 20190404
  8. OLECLUMAB. [Suspect]
     Active Substance: OLECLUMAB
     Dosage: 3000 MILLIGRAM
     Route: 041
     Dates: start: 20190513, end: 20190513
  9. OMEPRAZOLE. [Concomitant]
     Active Substance: OMEPRAZOLE
     Indication: PROPHYLAXIS AGAINST GASTROINTESTINAL ULCER
     Dosage: 20 MILLIGRAM, QD
     Route: 048
     Dates: start: 2018
  10. ABRAXANE [Suspect]
     Active Substance: PACLITAXEL
     Dosage: 100 MILLIGRAM/SQ. METER
     Dates: start: 20190513, end: 20190513
  11. OLECLUMAB. [Suspect]
     Active Substance: OLECLUMAB
     Dosage: 3000 MILLIGRAM
     Route: 041
     Dates: start: 20190213, end: 20190213
  12. GEMCITABINE. [Suspect]
     Active Substance: GEMCITABINE
     Dosage: 800 MILLIGRAM/SQ. METER
     Route: 041
     Dates: start: 20190410, end: 20190410
  13. OLECLUMAB. [Suspect]
     Active Substance: OLECLUMAB
     Dosage: 3000 MILLIGRAM
     Route: 041
     Dates: start: 20190404, end: 20190404
  14. GEMCITABINE. [Suspect]
     Active Substance: GEMCITABINE
     Dosage: 800 MILLIGRAM/SQ. METER
     Route: 041
     Dates: start: 20190319, end: 20190319
  15. GEMCITABINE. [Suspect]
     Active Substance: GEMCITABINE
     Dosage: 800 MILLIGRAM/SQ. METER
     Route: 041
     Dates: start: 20190123, end: 20190123
  16. OLECLUMAB. [Suspect]
     Active Substance: OLECLUMAB
     Dosage: 3000 MILLIGRAM
     Route: 041
     Dates: start: 20190319, end: 20190319
  17. KREON [Concomitant]
     Active Substance: PANCRELIPASE
     Indication: PANCREATIC CARCINOMA METASTATIC
  18. ABRAXANE [Suspect]
     Active Substance: PACLITAXEL
     Dosage: 100 MILLIGRAM/SQ. METER
     Route: 041
     Dates: start: 20190410, end: 20190410
  19. ABRAXANE [Suspect]
     Active Substance: PACLITAXEL
     Dosage: 100 MILLIGRAM/SQ. METER
     Dates: start: 20190227, end: 20190227
  20. NAPROXEN SODIUM. [Concomitant]
     Active Substance: NAPROXEN SODIUM
     Indication: NAUSEA
     Dosage: 10 MILLIGRAM
     Route: 002
     Dates: start: 20190124
  21. ABRAXANE [Suspect]
     Active Substance: PACLITAXEL
     Dosage: 100 MILLIGRAM/SQ. METER
     Dates: start: 20190520, end: 20190520
  22. ABRAXANE [Suspect]
     Active Substance: PACLITAXEL
     Dosage: 100 MILLIGRAM/SQ. METER
     Dates: start: 20190319, end: 20190319
  23. ABRAXANE [Suspect]
     Active Substance: PACLITAXEL
     Dosage: 100 MILLIGRAM/SQ. METER
     Dates: start: 20190416, end: 20190416
  24. OLECLUMAB. [Suspect]
     Active Substance: OLECLUMAB
     Dosage: 3000 MILLIGRAM
     Route: 041
     Dates: start: 20190227, end: 20190227
  25. GEMCITABINE. [Suspect]
     Active Substance: GEMCITABINE
     Dosage: 800 MILLIGRAM/SQ. METER
     Route: 041
     Dates: start: 20190213, end: 20190213
  26. GEMCITABINE. [Suspect]
     Active Substance: GEMCITABINE
     Dosage: 800 MILLIGRAM/SQ. METER
     Route: 041
     Dates: start: 20190227, end: 20190227
  27. GEMCITABINE. [Suspect]
     Active Substance: GEMCITABINE
     Dosage: 800 MILLIGRAM/SQ. METER
     Route: 041
     Dates: start: 20190130, end: 20190130
  28. GEMCITABINE. [Suspect]
     Active Substance: GEMCITABINE
     Dosage: 800 MILLIGRAM/SQ. METER
     Route: 041
     Dates: start: 20190404, end: 20190404
  29. ABRAXANE [Suspect]
     Active Substance: PACLITAXEL
     Dosage: 100 MILLIGRAM/SQ. METER
     Dates: start: 20190123, end: 20190123

REACTIONS (1)
  - Biliary obstruction [Recovered/Resolved]

NARRATIVE: CASE EVENT DATE: 20190423
